FAERS Safety Report 18209706 (Version 1)
Quarter: 2020Q3

REPORT INFORMATION
  Report Type: Spontaneous
  Country: US (occurrence: US)
  Receive Date: 20200828
  Receipt Date: 20200828
  Transmission Date: 20201103
  Serious: Yes (Other)
  Sender: FDA-Public Use
  Company Number: US-PURDUE-USA-2020-0163766

PATIENT
  Sex: Male

DRUGS (1)
  1. OXYCODONE HYDROCHLORIDE (SIMILAR TO NDA 22?272) [Suspect]
     Active Substance: OXYCODONE HYDROCHLORIDE
     Indication: PRODUCT USED FOR UNKNOWN INDICATION
     Dosage: 10?325 DOSAGE, 4X A DAY
     Route: 048

REACTIONS (7)
  - Unevaluable event [Unknown]
  - Drug dependence [Unknown]
  - Brain injury [Unknown]
  - Nerve injury [Unknown]
  - Mental impairment [Unknown]
  - Anxiety [Unknown]
  - Frustration tolerance decreased [Unknown]
